FAERS Safety Report 25938607 (Version 1)
Quarter: 2025Q4

REPORT INFORMATION
  Report Type: Spontaneous
  Country: US (occurrence: US)
  Receive Date: 20251019
  Receipt Date: 20251019
  Transmission Date: 20260118
  Serious: No
  Sender: SANDOZ
  Company Number: US-002147023-NVSC2025US157310

PATIENT
  Age: 42 Year
  Sex: Female

DRUGS (1)
  1. TOBRADEX [Suspect]
     Active Substance: DEXAMETHASONE\TOBRAMYCIN
     Indication: Product used for unknown indication
     Dosage: UNK UNK, QID (APPLY TO EYE)
     Route: 047

REACTIONS (3)
  - Eye irritation [Unknown]
  - Product contamination physical [Unknown]
  - Product dose omission issue [Unknown]

NARRATIVE: CASE EVENT DATE: 20251006
